FAERS Safety Report 23736815 (Version 2)
Quarter: 2024Q3

REPORT INFORMATION
  Report Type: Spontaneous
  Country: PL (occurrence: PL)
  Receive Date: 20240412
  Receipt Date: 20240813
  Transmission Date: 20241017
  Serious: Yes (Other)
  Sender: RANBAXY
  Company Number: PL-SUN PHARMACEUTICAL INDUSTRIES LTD-2024R1-440618

PATIENT
  Age: 27 Year
  Sex: Female

DRUGS (2)
  1. METHYLDOPA [Suspect]
     Active Substance: METHYLDOPA
     Indication: Gestational hypertension
     Dosage: UNK
     Route: 065
  2. LABETALOL [Suspect]
     Active Substance: LABETALOL\LABETALOL HYDROCHLORIDE
     Indication: Pre-eclampsia
     Dosage: UNK
     Route: 065

REACTIONS (4)
  - Exposure during pregnancy [Unknown]
  - Proteinuria [Unknown]
  - Drug ineffective [Unknown]
  - Premature delivery [Unknown]
